FAERS Safety Report 9107535 (Version 1)
Quarter: 2013Q1

REPORT INFORMATION
  Report Type: Spontaneous
  Country: BR (occurrence: BR)
  Receive Date: 20130221
  Receipt Date: 20130221
  Transmission Date: 20140127
  Serious: Yes (Other)
  Sender: FDA-Public Use
  Company Number: BR-009507513-1302BRA009890

PATIENT
  Sex: Female
  Weight: 87 kg

DRUGS (4)
  1. RIBAVIRIN [Suspect]
     Indication: HEPATITIS C
     Dosage: UNK UNK, UNKNOWN
     Route: 048
     Dates: start: 1977
  2. RIBAVIRIN [Suspect]
     Dosage: UNK UNK, UNKNOWN
     Route: 048
     Dates: start: 2007
  3. INTERFERON (UNSPECIFIED) [Concomitant]
     Indication: HEPATITIS C
     Dosage: UNK, UNKNOWN
     Route: 065
     Dates: start: 1977
  4. INTERFERON (UNSPECIFIED) [Concomitant]
     Dosage: UNK, UNKNOWN
     Route: 065
     Dates: start: 2007

REACTIONS (4)
  - Cholecystectomy [Recovered/Resolved]
  - Rheumatic disorder [Not Recovered/Not Resolved]
  - Hypertension [Not Recovered/Not Resolved]
  - Drug ineffective [Unknown]
